FAERS Safety Report 9282790 (Version 1)
Quarter: 2013Q2

REPORT INFORMATION
  Report Type: Spontaneous
  Country: US (occurrence: None)
  Receive Date: 20130506
  Receipt Date: 20130506
  Transmission Date: 20140414
  Serious: Yes (Hospitalization, Other)
  Sender: FDA-Public Use
  Company Number: 2013P1005165

PATIENT
  Age: 50 Year
  Sex: Female

DRUGS (12)
  1. CITALOPRAM [Suspect]
     Indication: POST-TRAUMATIC STRESS DISORDER
  2. BUPROPION [Suspect]
     Indication: POST-TRAUMATIC STRESS DISORDER
  3. PAROXETINE [Suspect]
     Indication: POST-TRAUMATIC STRESS DISORDER
  4. LORAZEPAM [Suspect]
     Indication: POST-TRAUMATIC STRESS DISORDER
  5. PREGABALIN [Suspect]
     Indication: POST-TRAUMATIC STRESS DISORDER
  6. MIRTAZAPINE [Suspect]
     Indication: POST-TRAUMATIC STRESS DISORDER
  7. HORMONES [Suspect]
  8. UNSPECIFIED NATUROPATHIC MEDICINE [Concomitant]
  9. UNSPECIFIED HOMEOPATHY TREATMENT [Concomitant]
  10. UNSPECIFIED CHINESE HERBS [Concomitant]
  11. GEMMO [Concomitant]
  12. TARGETED AMINO ACID THERAPY [Concomitant]

REACTIONS (13)
  - Fatigue [None]
  - Loss of libido [None]
  - Homicidal ideation [None]
  - Suicide attempt [None]
  - Depression [None]
  - Withdrawal syndrome [None]
  - Impaired work ability [None]
  - Constipation [None]
  - Tachycardia [None]
  - Agitation [None]
  - Intentional self-injury [None]
  - Weight increased [None]
  - Motor dysfunction [None]
